FAERS Safety Report 4764893-0 (Version None)
Quarter: 2005Q3

REPORT INFORMATION
  Report Type: 
  Country: None (occurrence: None)
  Receive Date: 20050906
  Receipt Date: 20050811
  Transmission Date: 20060218
  Serious: Yes (Hospitalization)
  Sender: FDA-Public Use
  Company Number: 107319ISR

PATIENT
  Age: 39 Year
  Sex: Male

DRUGS (2)
  1. GLATIRAMER ACETATE [Suspect]
     Indication: MULTIPLE SCLEROSIS
     Dosage: 20 MILLIGRAM SUBCUTANEOUS
     Route: 058
     Dates: start: 20020308, end: 20030915
  2. INTERFERON BETA [Suspect]
     Dosage: INTRAMUSCULAR
     Route: 030
     Dates: start: 20010515, end: 20010915

REACTIONS (2)
  - METASTASES TO CENTRAL NERVOUS SYSTEM [None]
  - NEOPLASM MALIGNANT [None]
